FAERS Safety Report 11247905 (Version 1)
Quarter: 2015Q3

REPORT INFORMATION
  Report Type: Spontaneous
  Country: US (occurrence: None)
  Receive Date: 20150707
  Receipt Date: 20150707
  Transmission Date: 20151125
  Serious: Yes (Disabling)
  Sender: FDA-Public Use
  Company Number: None

PATIENT
  Age: 56 Year
  Sex: Male
  Weight: 95.26 kg

DRUGS (2)
  1. AMITRIPTULINE HCL GENERIC FOR ELAVIL [Suspect]
     Active Substance: AMITRIPTYLINE
  2. CLONIDINE HCL GENERIC CATAPRRES QUALITEST [Suspect]
     Active Substance: CLONIDINE HYDROCHLORIDE
     Indication: DEPRESSION
     Route: 048
     Dates: start: 2008, end: 20140610

REACTIONS (8)
  - Impaired work ability [None]
  - Arthralgia [None]
  - Weight decreased [None]
  - Swelling [None]
  - Anaemia [None]
  - Bone pain [None]
  - Tooth fracture [None]
  - Alopecia [None]

NARRATIVE: CASE EVENT DATE: 2008
